FAERS Safety Report 18697477 (Version 1)
Quarter: 2021Q1

REPORT INFORMATION
  Report Type: Spontaneous
  Country: US (occurrence: US)
  Receive Date: 20210104
  Receipt Date: 20210104
  Transmission Date: 20210419
  Serious: Yes (Other)
  Sender: FDA-Public Use
  Company Number: US-PURDUE-USA-2020-0193447

PATIENT

DRUGS (1)
  1. OXYCONTIN [Suspect]
     Active Substance: OXYCODONE HYDROCHLORIDE
     Indication: PAIN
     Dosage: UNKN
     Route: 048
     Dates: start: 199906

REACTIONS (4)
  - Liver injury [Unknown]
  - Drug dependence [Unknown]
  - Hepatic failure [Unknown]
  - Drug ineffective [Unknown]
